FAERS Safety Report 7190382-2 (Version None)
Quarter: 2010Q4

REPORT INFORMATION
  Report Type: 
  Country: None (occurrence: None)
  Receive Date: 20101223
  Receipt Date: 20101216
  Transmission Date: 20110411
  Serious: Yes (Other)
  Sender: FDA-Public Use
  Company Number: US-PURDUE-USA-2010-0056254

PATIENT
  Sex: Female

DRUGS (2)
  1. MORPHINE SULFATE [Suspect]
     Indication: PRODUCT USED FOR UNKNOWN INDICATION
     Dosage: 15 MG, TID
     Route: 048
     Dates: start: 20000101
  2. MORPHINE SULFATE [Suspect]
     Dosage: 15 MG, SEE TEXT
     Route: 048
     Dates: start: 20100101

REACTIONS (1)
  - ATRIAL FIBRILLATION [None]
